FAERS Safety Report 19754577 (Version 1)
Quarter: 2021Q3

REPORT INFORMATION
  Report Type: Spontaneous
  Country: US (occurrence: US)
  Receive Date: 20210827
  Receipt Date: 20210827
  Transmission Date: 20211014
  Serious: Yes (Hospitalization, Other)
  Sender: FDA-Public Use
  Company Number: None

PATIENT
  Age: 74 Year
  Sex: Male
  Weight: 122 kg

DRUGS (4)
  1. IVERMECTIN. [Suspect]
     Active Substance: IVERMECTIN
     Indication: COVID-19
     Route: 048
  2. REMDESIVIR. [Concomitant]
     Active Substance: REMDESIVIR
     Dates: start: 20210823, end: 20210827
  3. TOCILIZUMAB. [Concomitant]
     Active Substance: TOCILIZUMAB
     Dates: start: 20210822
  4. DEXAMETHASONE. [Concomitant]
     Active Substance: DEXAMETHASONE
     Dates: start: 20210822

REACTIONS (2)
  - Hepatic enzyme increased [None]
  - Aspartate aminotransferase increased [None]

NARRATIVE: CASE EVENT DATE: 20210821
